FAERS Safety Report 13183589 (Version 2)
Quarter: 2018Q3

REPORT INFORMATION
  Report Type: Spontaneous
  Country: JP (occurrence: JP)
  Receive Date: 20170203
  Receipt Date: 20180830
  Transmission Date: 20181010
  Serious: Yes (Death, Hospitalization, Other)
  Sender: FDA-Public Use
  Company Number: JP-BRISTOL-MYERS SQUIBB COMPANY-BMS-2016-062698

PATIENT
  Age: 67 Year
  Sex: Male

DRUGS (1)
  1. OPDIVO [Suspect]
     Active Substance: NIVOLUMAB
     Indication: PRODUCT USED FOR UNKNOWN INDICATION
     Dosage: 3 MG/KG, 220MG
     Route: 041
     Dates: start: 20160720, end: 20160720

REACTIONS (6)
  - Transfusion [Unknown]
  - Renal impairment [Unknown]
  - Disseminated intravascular coagulation [Unknown]
  - Pneumonitis [Fatal]
  - Delirium [Unknown]
  - Anaemia [Unknown]

NARRATIVE: CASE EVENT DATE: 20160723
